FAERS Safety Report 16060251 (Version 1)
Quarter: 2019Q1

REPORT INFORMATION
  Report Type: Other
  Country: TR (occurrence: TR)
  Receive Date: 20190312
  Receipt Date: 20190312
  Transmission Date: 20190418
  Serious: Yes (Other)
  Sender: FDA-Public Use
  Company Number: TR-DEXPHARM-20190159

PATIENT
  Age: 15 Year
  Sex: Male

DRUGS (4)
  1. RISPERIDONE. [Concomitant]
     Active Substance: RISPERIDONE
     Indication: GENERALISED TONIC-CLONIC SEIZURE
     Dosage: 0.5 MG/D
  2. LEVETIRACETAM. [Suspect]
     Active Substance: LEVETIRACETAM
     Indication: GENERALISED TONIC-CLONIC SEIZURE
     Dosage: 40 MG/KG/D BY A WEEKLY DOSE TITRATION
  3. RISPERIDONE. [Concomitant]
     Active Substance: RISPERIDONE
     Indication: GENERALISED TONIC-CLONIC SEIZURE
     Dosage: 1 MG/D
  4. LEVETIRACETAM. [Suspect]
     Active Substance: LEVETIRACETAM
     Dosage: 20 MG/KG/D

REACTIONS (1)
  - Mania [Recovered/Resolved]
